FAERS Safety Report 8790896 (Version 1)
Quarter: 2012Q4

REPORT INFORMATION
  Report Type: Spontaneous
  Country: US (occurrence: None)
  Receive Date: 20120906
  Receipt Date: 20120906
  Transmission Date: 20130627
  Serious: Yes (Hospitalization)
  Sender: FDA-Public Use
  Company Number: JPI-P-022518

PATIENT
  Age: 77 Year
  Sex: Female
  Weight: 68.04 kg

DRUGS (21)
  1. XYREM (500 MILLIGRAM/MILLILITERS, SOLUTION)(SODIUM OXYBATE) [Suspect]
     Indication: NARCOLEPSY
     Dosage: (2.25 gm, 2 in 1 D), Oral
     Route: 048
     Dates: start: 20050105
  2. CYCLOSPORINE [Concomitant]
  3. LORAZEPAM [Concomitant]
  4. CRANBERRY [Concomitant]
  5. FIBER [Concomitant]
  6. B12 [Concomitant]
  7. B6 [Concomitant]
  8. IRON [Concomitant]
  9. GUAIFENESIN [Concomitant]
  10. CLOPIDOGREL BISULFATE [Concomitant]
  11. ATENOLOL; CHLORTHALIDONE [Concomitant]
  12. ISOSORBIDE [Concomitant]
  13. CEVIMELINE [Concomitant]
  14. ATORVASTATIN CALCIUM [Concomitant]
  15. TOLTERODINE TARTRATE [Concomitant]
  16. CYCLOBENZAPRINE HYDROCHLORIDE [Concomitant]
  17. HYDROCODONE/ACETAMINOPHEN [Concomitant]
  18. PRAMIPEXOLE [Concomitant]
  19. CLOTRIMAZOLE [Concomitant]
  20. OLOPATADINE HYDROCHLORIDE [Concomitant]
  21. METHYLPHENIDATE [Concomitant]

REACTIONS (7)
  - Mental disorder [None]
  - Depression [None]
  - Anxiety [None]
  - Crying [None]
  - Feeling abnormal [None]
  - Fall [None]
  - Coronary arterial stent insertion [None]
